FAERS Safety Report 8695846 (Version 3)
Quarter: 2013Q1

REPORT INFORMATION
  Report Type: Report from Study
  Country: CA (occurrence: CA)
  Receive Date: 20120801
  Receipt Date: 20130306
  Transmission Date: 20140127
  Serious: Yes (Other)
  Sender: FDA-Public Use
  Company Number: CA-BRISTOL-MYERS SQUIBB COMPANY-16798944

PATIENT
  Age: 59 Year
  Sex: Female
  Weight: 106 kg

DRUGS (8)
  1. ORENCIA [Suspect]
     Indication: RHEUMATOID ARTHRITIS
     Dosage: 1 INFUSION?15ML OF ORENCIA
     Route: 042
     Dates: start: 20120719, end: 20120719
  2. HUMULIN [Concomitant]
  3. LANTUS [Concomitant]
  4. ATROVENT [Concomitant]
  5. VENTOLIN [Concomitant]
  6. EFFEXOR [Concomitant]
  7. PLAQUENIL [Concomitant]
  8. GOLD [Concomitant]

REACTIONS (2)
  - Chest pain [Recovered/Resolved]
  - Atrial fibrillation [Recovered/Resolved]
